FAERS Safety Report 5775875-4 (Version None)
Quarter: 2008Q2

REPORT INFORMATION
  Report Type: 
  Country: None (occurrence: None)
  Receive Date: 20080617
  Receipt Date: 20080603
  Transmission Date: 20081010
  Serious: No
  Sender: FDA-Public Use
  Company Number: AU-ELI_LILLY_AND_COMPANY-AU200806000354

PATIENT
  Age: 52 Year
  Sex: Male

DRUGS (4)
  1. CYMBALTA [Suspect]
     Indication: DEPRESSION
     Dosage: 60 MG, DAILY (1/D)
     Route: 048
     Dates: start: 20080521
  2. LITHIUM CARBONATE [Concomitant]
     Indication: BIPOLAR DISORDER
     Dosage: 675 MG, DAILY (1/D)
     Route: 048
  3. SEROQUEL [Concomitant]
     Indication: BIPOLAR DISORDER
     Dosage: 12.5 MG, DAILY (1/D), AT NIGHT
  4. SEREPAX [Concomitant]
     Indication: BIPOLAR DISORDER
     Dosage: UNK, AS NEEDED

REACTIONS (1)
  - LIVER FUNCTION TEST ABNORMAL [None]
